FAERS Safety Report 11658975 (Version 1)
Quarter: 2015Q4

REPORT INFORMATION
  Report Type: Spontaneous
  Country: US (occurrence: None)
  Receive Date: 20151023
  Receipt Date: 20151023
  Transmission Date: 20160304
  Serious: Yes (Other)
  Sender: FDA-Public Use
  Company Number: None

PATIENT
  Age: 30 Year
  Sex: Male
  Weight: 63.5 kg

DRUGS (5)
  1. MOVANTIK [Suspect]
     Active Substance: NALOXEGOL OXALATE
     Indication: CONSTIPATION
     Route: 048
     Dates: start: 20151022, end: 20151022
  2. OXYCODONE [Concomitant]
     Active Substance: OXYCODONE
  3. BACLOFEN. [Concomitant]
     Active Substance: BACLOFEN
  4. ADDERALL XR [Concomitant]
     Active Substance: AMPHETAMINE ASPARTATE\AMPHETAMINE SULFATE\DEXTROAMPHETAMINE SACCHARATE\DEXTROAMPHETAMINE SULFATE
  5. MSCONTIN [Concomitant]

REACTIONS (2)
  - Impaired work ability [None]
  - Frequent bowel movements [None]

NARRATIVE: CASE EVENT DATE: 20151022
